FAERS Safety Report 4722536-6 (Version None)
Quarter: 2005Q3

REPORT INFORMATION
  Report Type: 
  Country: None (occurrence: None)
  Receive Date: 20050722
  Receipt Date: 20050711
  Transmission Date: 20060218
  Serious: Yes (Other)
  Sender: FDA-Public Use
  Company Number: BR-JNJFOC-20050702931

PATIENT
  Age: 33 Year
  Sex: Female
  Weight: 65 kg

DRUGS (1)
  1. ORTHO EVRA [Suspect]
     Indication: CONTRACEPTION
     Route: 062

REACTIONS (5)
  - ABORTION SPONTANEOUS [None]
  - APPLICATION SITE ERYTHEMA [None]
  - APPLICATION SITE PRURITUS [None]
  - DRUG EXPOSURE DURING PREGNANCY [None]
  - UNINTENDED PREGNANCY [None]
